FAERS Safety Report 9258788 (Version 2)
Quarter: 2013Q4

REPORT INFORMATION
  Report Type: Spontaneous
  Country: GB (occurrence: GB)
  Receive Date: 20130426
  Receipt Date: 20131014
  Transmission Date: 20140711
  Serious: Yes (Hospitalization, Other)
  Sender: FDA-Public Use
  Company Number: GB-BRISTOL-MYERS SQUIBB COMPANY-18803494

PATIENT
  Age: 60 Year
  Sex: Male

DRUGS (3)
  1. METFORMIN HCL TABS 500MG [Suspect]
     Dosage: 100 METFORMIN 500MG/TAB
     Route: 048
  2. GLIBENCLAMIDE [Suspect]
     Dosage: 20 GLIBENCLAMIDE 5MG TAB
     Route: 048
  3. MOTRIN [Suspect]
     Dosage: TOOK 20 IBUPROFEN 400MG/TAB
     Route: 048

REACTIONS (10)
  - Ventricular fibrillation [Recovered/Resolved]
  - Anuria [Recovered/Resolved]
  - Apnoea [Recovered/Resolved]
  - Sedation [Recovered/Resolved]
  - Agitation [Recovered/Resolved]
  - Tachypnoea [Recovered/Resolved]
  - Lactic acidosis [Recovered/Resolved]
  - Abdominal pain [Recovered/Resolved]
  - Vomiting [Recovered/Resolved]
  - Intentional overdose [Recovered/Resolved]
